FAERS Safety Report 11035510 (Version 3)
Quarter: 2015Q4

REPORT INFORMATION
  Report Type: Spontaneous
  Country: US (occurrence: US)
  Receive Date: 20150415
  Receipt Date: 20151216
  Transmission Date: 20160304
  Serious: Yes (Hospitalization)
  Sender: FDA-Public Use
  Company Number: US-ALLERGAN-1506772US

PATIENT
  Age: 6 Year
  Sex: Female
  Weight: 17.4 kg

DRUGS (10)
  1. BOTOX [Suspect]
     Active Substance: ONABOTULINUMTOXINA
     Dosage: 50 UNITS, UNK
     Route: 030
     Dates: start: 20150324, end: 20150324
  2. BOTOX [Suspect]
     Active Substance: ONABOTULINUMTOXINA
     Dosage: 40 UNITS, UNK
     Route: 030
     Dates: start: 20150324, end: 20150324
  3. EMLA [Concomitant]
     Active Substance: LIDOCAINE\PRILOCAINE
     Indication: ANALGESIC THERAPY
     Dosage: UNK
     Route: 061
     Dates: start: 20140324
  4. CHOLECALCIFEROL [Concomitant]
     Active Substance: CHOLECALCIFEROL
     Indication: BONE DISORDER
     Dosage: 1000 IU, QD
     Route: 048
     Dates: start: 201501
  5. BOTOX [Suspect]
     Active Substance: ONABOTULINUMTOXINA
     Indication: MUSCLE SPASTICITY
     Dosage: 50 UNITS, SINGLE
     Route: 030
     Dates: start: 20150324, end: 20150324
  6. BOTOX [Suspect]
     Active Substance: ONABOTULINUMTOXINA
     Dosage: 30 UNITS, UNK
     Route: 030
     Dates: start: 20150324, end: 20150324
  7. BOTOX [Suspect]
     Active Substance: ONABOTULINUMTOXINA
     Dosage: 30 UNITS, UNK
     Route: 030
     Dates: start: 20150324, end: 20150324
  8. BOTOX [Suspect]
     Active Substance: ONABOTULINUMTOXINA
     Dosage: 30 UNITS, UNK
     Route: 030
     Dates: start: 20150324, end: 20150324
  9. BOTOX [Suspect]
     Active Substance: ONABOTULINUMTOXINA
     Dosage: 40 UNITS, UNK
     Route: 030
     Dates: start: 20150324, end: 20150324
  10. BOTOX [Suspect]
     Active Substance: ONABOTULINUMTOXINA
     Dosage: 30 UNITS, UNK
     Route: 030
     Dates: start: 20150324, end: 20150324

REACTIONS (8)
  - Botulism [Not Recovered/Not Resolved]
  - Gaze palsy [Not Recovered/Not Resolved]
  - Dizziness [Unknown]
  - Hypotonia [Not Recovered/Not Resolved]
  - Overdose [Unknown]
  - Muscular weakness [Recovered/Resolved]
  - Fatigue [Not Recovered/Not Resolved]
  - Headache [Unknown]

NARRATIVE: CASE EVENT DATE: 20150404
